FAERS Safety Report 15786438 (Version 2)
Quarter: 2019Q2

REPORT INFORMATION
  Report Type: Report from Study
  Country: US (occurrence: US)
  Receive Date: 20190103
  Receipt Date: 20190411
  Transmission Date: 20190711
  Serious: Yes (Life-Threatening, Hospitalization)
  Sender: FDA-Public Use
  Company Number: US-JNJFOC-20190101531

PATIENT
  Age: 82 Year
  Sex: Male

DRUGS (26)
  1. PREDNISONE. [Concomitant]
     Active Substance: PREDNISONE
  2. NORVASC [Concomitant]
     Active Substance: AMLODIPINE BESYLATE
  3. PLAVIX [Concomitant]
     Active Substance: CLOPIDOGREL BISULFATE
  4. AVODART [Concomitant]
     Active Substance: DUTASTERIDE
  5. ZOFRAN [Concomitant]
     Active Substance: ONDANSETRON HYDROCHLORIDE
  6. FIBER [Concomitant]
     Active Substance: PSYLLIUM HUSK
  7. NEURONTIN [Concomitant]
     Active Substance: GABAPENTIN
  8. IMBRUVICA [Suspect]
     Active Substance: IBRUTINIB
     Indication: CHRONIC LYMPHOCYTIC LEUKAEMIA
     Route: 048
     Dates: start: 20180818, end: 201809
  9. IMBRUVICA [Suspect]
     Active Substance: IBRUTINIB
     Indication: CHRONIC LYMPHOCYTIC LEUKAEMIA
     Route: 048
     Dates: start: 20180807, end: 201903
  10. NEXIUM [Concomitant]
     Active Substance: ESOMEPRAZOLE MAGNESIUM
  11. CEFALEXIN [Concomitant]
     Active Substance: CEPHALEXIN
  12. KEFLEX [Concomitant]
     Active Substance: CEPHALEXIN
  13. IMBRUVICA [Suspect]
     Active Substance: IBRUTINIB
     Indication: MALIGNANT MELANOMA
     Route: 048
     Dates: start: 20180818, end: 201809
  14. IMBRUVICA [Suspect]
     Active Substance: IBRUTINIB
     Indication: MALIGNANT MELANOMA
     Route: 048
     Dates: start: 20180807, end: 201903
  15. FLOMAX [Concomitant]
     Active Substance: TAMSULOSIN HYDROCHLORIDE
  16. ALDARA [Concomitant]
     Active Substance: IMIQUIMOD
  17. BENADRYL [Concomitant]
     Active Substance: DIPHENHYDRAMINE HYDROCHLORIDE
  18. TRIMETHOPRIM. [Concomitant]
     Active Substance: TRIMETHOPRIM
  19. FISH OIL [Concomitant]
     Active Substance: FISH OIL
  20. MYRBETRIQ [Concomitant]
     Active Substance: MIRABEGRON
  21. TYLENOL [Concomitant]
     Active Substance: ACETAMINOPHEN
  22. METOPROLOL TARTRATE. [Concomitant]
     Active Substance: METOPROLOL TARTRATE
  23. HYDROCHLOROTHIAZIDE. [Concomitant]
     Active Substance: HYDROCHLOROTHIAZIDE
  24. MELATONIN [Concomitant]
     Active Substance: MELATONIN
  25. OMEPRAZOLE. [Concomitant]
     Active Substance: OMEPRAZOLE
  26. LIPITOR [Concomitant]
     Active Substance: ATORVASTATIN CALCIUM

REACTIONS (5)
  - Renal failure [Recovering/Resolving]
  - Pneumonia [Recovering/Resolving]
  - Myocardial infarction [Recovering/Resolving]
  - Herpes zoster [Recovering/Resolving]
  - Localised infection [Recovering/Resolving]

NARRATIVE: CASE EVENT DATE: 20180923
